FAERS Safety Report 14567059 (Version 1)
Quarter: 2018Q1

REPORT INFORMATION
  Report Type: Report from Study
  Country: FR (occurrence: FR)
  Receive Date: 20180223
  Receipt Date: 20180223
  Transmission Date: 20180509
  Serious: Yes (Hospitalization, Other)
  Sender: FDA-Public Use
  Company Number: FR-JNJFOC-20180115179

PATIENT
  Age: 51 Year
  Sex: Male

DRUGS (5)
  1. NORVIR [Suspect]
     Active Substance: RITONAVIR
     Indication: HIV INFECTION
     Route: 065
     Dates: start: 20140519
  2. DOLUTEGRAVIR [Suspect]
     Active Substance: DOLUTEGRAVIR
     Indication: HIV INFECTION
     Route: 048
     Dates: start: 20140519
  3. PREZISTA [Suspect]
     Active Substance: DARUNAVIR ETHANOLATE
     Indication: HIV INFECTION
     Route: 048
     Dates: start: 20140519
  4. EPIVIR [Suspect]
     Active Substance: LAMIVUDINE
     Indication: HIV INFECTION
     Route: 065
     Dates: start: 20140519
  5. TIVICAY [Suspect]
     Active Substance: DOLUTEGRAVIR SODIUM
     Indication: HIV INFECTION
     Route: 065
     Dates: start: 20140519

REACTIONS (17)
  - Thrombocytopenia [Unknown]
  - Diarrhoea [Unknown]
  - Anal cancer stage 0 [Recovered/Resolved]
  - Asthenia [Unknown]
  - Anogenital warts [Unknown]
  - Arthralgia [Unknown]
  - Muscle spasms [Unknown]
  - Nausea [Unknown]
  - Depressed mood [Unknown]
  - Anogenital warts [Unknown]
  - Anogenital dysplasia [Recovered/Resolved]
  - Hallucination [Unknown]
  - Herpes simplex [Unknown]
  - Vomiting [Unknown]
  - Papilloma excision [Unknown]
  - Emphysema [Unknown]
  - Asthma [Unknown]

NARRATIVE: CASE EVENT DATE: 2014
